FAERS Safety Report 11402799 (Version 1)
Quarter: 2015Q3

REPORT INFORMATION
  Report Type: Spontaneous
  Country: US (occurrence: None)
  Receive Date: 20150812
  Receipt Date: 20150812
  Transmission Date: 20151125
  Serious: No
  Sender: FDA-Public Use
  Company Number: 1505USA015811

PATIENT
  Sex: Female

DRUGS (1)
  1. RAGWITEK [Suspect]
     Active Substance: AMBROSIA ARTEMISIIFOLIA POLLEN
     Indication: SEASONAL ALLERGY
     Dosage: 1 TABLET
     Route: 060
     Dates: start: 20150521

REACTIONS (2)
  - Ear pruritus [None]
  - Oral pruritus [None]

NARRATIVE: CASE EVENT DATE: 20150521
